FAERS Safety Report 5059028-3 (Version None)
Quarter: 2006Q3

REPORT INFORMATION
  Report Type: 
  Country: None (occurrence: None)
  Receive Date: 20060709
  Receipt Date: 20060707
  Transmission Date: 20061208
  Serious: Yes (Hospitalization, Other)
  Sender: FDA-Public Use
  Company Number: HQWYE743011JUL06

PATIENT
  Sex: Female

DRUGS (2)
  1. PREMPRO [Suspect]
  2. CYCRIN [Suspect]

REACTIONS (1)
  - BREAST CANCER METASTATIC [None]
